FAERS Safety Report 12076350 (Version 14)
Quarter: 2024Q2

REPORT INFORMATION
  Report Type: Other
  Country: CA (occurrence: None)
  Receive Date: 20160215
  Receipt Date: 20240511
  Transmission Date: 20240715
  Serious: Yes (Death, Hospitalization, Other)
  Sender: FDA-Public Use
  Company Number: CA-ROCHE-1288257

PATIENT
  Age: 60 Year
  Sex: Female

DRUGS (22)
  1. RITUXAN [Suspect]
     Active Substance: RITUXIMAB
     Indication: Rheumatoid arthritis
     Dosage: ON 25/FEB/2016, SHE RECEIVED LAST DOSE OF DRUG PRIOR TO EVENT.
     Route: 042
     Dates: start: 20070319, end: 20170717
  2. ACETAMINOPHEN [Concomitant]
     Active Substance: ACETAMINOPHEN
     Indication: Premedication
     Route: 048
     Dates: start: 20070319, end: 20170717
  3. METHYLPREDNISOLONE [Concomitant]
     Active Substance: METHYLPREDNISOLONE
     Indication: Premedication
     Route: 042
     Dates: start: 20070319, end: 20170717
  4. CELEBREX [Concomitant]
     Active Substance: CELECOXIB
  5. PLAQUENIL [Concomitant]
     Active Substance: HYDROXYCHLOROQUINE SULFATE
  6. SULFASALAZINE [Concomitant]
     Active Substance: SULFASALAZINE
  7. IMURAN [Concomitant]
     Active Substance: AZATHIOPRINE
  8. PREDNISONE [Concomitant]
     Active Substance: PREDNISONE
  9. ALTACE [Concomitant]
     Active Substance: RAMIPRIL
  10. SYNTHROID [Concomitant]
     Active Substance: LEVOTHYROXINE SODIUM
  11. FOLIC ACID [Concomitant]
     Active Substance: FOLIC ACID
  12. ELAVIL [Concomitant]
     Active Substance: AMITRIPTYLINE HYDROCHLORIDE
  13. NEXIUM [Concomitant]
     Active Substance: ESOMEPRAZOLE MAGNESIUM
  14. FOSAMAX [Concomitant]
     Active Substance: ALENDRONATE SODIUM
  15. HYDROMORPHONE [Concomitant]
     Active Substance: HYDROMORPHONE
  16. DILAUDID [Concomitant]
     Active Substance: HYDROMORPHONE HYDROCHLORIDE
  17. COLACE [Concomitant]
     Active Substance: DOCUSATE SODIUM
  18. VESICARE [Concomitant]
     Active Substance: SOLIFENACIN SUCCINATE
  19. SENOKOT [Concomitant]
     Active Substance: SENNOSIDES
  20. CYCLOBENZAPRINE [Concomitant]
     Active Substance: CYCLOBENZAPRINE
  21. DIPHENHYDRAMINE HYDROCHLORIDE [Concomitant]
     Active Substance: DIPHENHYDRAMINE HYDROCHLORIDE
     Indication: Premedication
     Route: 048
     Dates: start: 20070319, end: 20170717
  22. CEFADROXIL [Concomitant]
     Active Substance: CEFADROXIL
     Dosage: X10 DAYS, X 3

REACTIONS (24)
  - Pulmonary fibrosis [Fatal]
  - Hypervolaemia [Fatal]
  - Infection [Fatal]
  - Arthritis [Unknown]
  - Spinal disorder [Unknown]
  - Respiratory failure [Not Recovered/Not Resolved]
  - Arthropathy [Unknown]
  - Loss of personal independence in daily activities [Recovering/Resolving]
  - Arthritis infective [Not Recovered/Not Resolved]
  - Lower limb fracture [Unknown]
  - Pain [Not Recovered/Not Resolved]
  - Hypoaesthesia [Not Recovered/Not Resolved]
  - Pulmonary fibrosis [Recovering/Resolving]
  - Psoriasis [Recovering/Resolving]
  - Psoriasis [Not Recovered/Not Resolved]
  - Hypertension [Not Recovered/Not Resolved]
  - Oxygen saturation decreased [Unknown]
  - Dyspnoea [Recovering/Resolving]
  - Back injury [Recovering/Resolving]
  - Oropharyngeal pain [Unknown]
  - Sputum discoloured [Unknown]
  - Cough [Not Recovered/Not Resolved]
  - Bronchitis [Not Recovered/Not Resolved]
  - Infusion related reaction [Unknown]

NARRATIVE: CASE EVENT DATE: 20131009
